FAERS Safety Report 9625044 (Version 2)
Quarter: 2013Q4

REPORT INFORMATION
  Report Type: Report from Study
  Country: US (occurrence: US)
  Receive Date: 20131016
  Receipt Date: 20131016
  Transmission Date: 20140711
  Serious: Yes (Death, Hospitalization, Other)
  Sender: FDA-Public Use
  Company Number: US-BRISTOL-MYERS SQUIBB COMPANY-16782757

PATIENT
  Age: 60 Year
  Sex: Female

DRUGS (19)
  1. IPILIMUMAB [Suspect]
     Indication: METASTATIC MALIGNANT MELANOMA
     Route: 042
     Dates: start: 20120327, end: 20120529
  2. EVISTA [Concomitant]
     Indication: OSTEOPOROSIS
     Route: 048
     Dates: start: 20090615
  3. TRIAMTERENE [Concomitant]
     Indication: HYPERTENSION
     Dosage: 1DF=37.5/25MG
     Route: 048
     Dates: start: 20080615
  4. TRAZODONE HCL [Concomitant]
     Indication: DEPRESSION
     Route: 048
     Dates: start: 20080615
  5. BENAZEPRIL HCL [Concomitant]
     Indication: HYPERTENSION
     Route: 048
     Dates: start: 20080615
  6. LOVASTATIN [Concomitant]
     Indication: HYPERLIPIDAEMIA
     Route: 048
     Dates: start: 20080615
  7. EFFEXOR [Concomitant]
     Indication: DEPRESSION
     Dosage: Q HS
     Route: 048
     Dates: start: 20080615
  8. TYLENOL [Concomitant]
     Indication: PAIN IN EXTREMITY
     Dosage: FREQUENCY:Q 4 - 6 HRS
     Route: 048
     Dates: start: 20120214
  9. AFRIN [Concomitant]
     Indication: NASAL CONGESTION
     Route: 045
     Dates: start: 20120310
  10. ALBUTEROL [Concomitant]
     Indication: ASTHMA
     Dosage: 1DF= PUFFS
     Route: 055
     Dates: start: 20120310
  11. FLONASE [Concomitant]
     Indication: ASTHMA
     Route: 045
     Dates: start: 20120310
  12. FLAGYL [Concomitant]
     Indication: WOUND
     Route: 048
     Dates: start: 20120417
  13. ADVIL [Concomitant]
     Indication: HEADACHE
     Route: 048
     Dates: start: 20120101
  14. OXYCONTIN [Concomitant]
     Indication: PAIN
     Dosage: FREQUENCY-Q12
     Route: 048
     Dates: start: 20120511
  15. PROTONIX [Concomitant]
     Indication: GASTROOESOPHAGEAL REFLUX DISEASE
     Route: 048
     Dates: start: 20120529
  16. NEURONTIN [Concomitant]
     Indication: PAIN IN EXTREMITY
     Dosage: TAB
     Route: 048
     Dates: start: 20120529
  17. NAPROSYN [Concomitant]
     Indication: PAIN
     Route: 048
     Dates: start: 20120511
  18. VENLAFAXINE HCL [Concomitant]
  19. MULTIVITAMIN [Concomitant]
     Route: 048
     Dates: start: 20080615

REACTIONS (4)
  - Sepsis [Fatal]
  - Renal failure acute [Recovered/Resolved]
  - Colitis [Recovered/Resolved]
  - Dehydration [Recovered/Resolved]
